FAERS Safety Report 22145561 (Version 1)
Quarter: 2023Q1

REPORT INFORMATION
  Report Type: Other
  Country: US (occurrence: None)
  Receive Date: 20230328
  Receipt Date: 20230328
  Transmission Date: 20230418
  Serious: Yes (Hospitalization, Other)
  Sender: FDA-Public Use
  Company Number: US-ROCHE-3128468

PATIENT
  Age: 32 Year
  Sex: Female
  Weight: 106.69 kg

DRUGS (5)
  1. OCREVUS [Suspect]
     Active Substance: OCRELIZUMAB
     Indication: Multiple sclerosis
     Dosage: FIRST TWO HALF DOSES OF OCRELIZUMAB IN OCT/2020
     Route: 042
     Dates: start: 202010, end: 202010
  2. OCREVUS [Suspect]
     Active Substance: OCRELIZUMAB
     Dosage: FIRST FULL DOSE: 21/MAR/2021?SUBSEQUENT DOSE OF OCRELIZUMAB: 21/FEB/2023
     Route: 042
     Dates: start: 20210321
  3. PREDNISONE [Concomitant]
     Active Substance: PREDNISONE
     Dosage: FOR 1 WEEK
     Route: 042
     Dates: start: 20200214
  4. PREDNISONE [Concomitant]
     Active Substance: PREDNISONE
     Dosage: FOR 1 WEEK
     Route: 048
     Dates: start: 20200221
  5. ZYRTEC [Concomitant]
     Active Substance: CETIRIZINE HYDROCHLORIDE

REACTIONS (9)
  - Blindness [Unknown]
  - Dysstasia [Unknown]
  - Fall [Unknown]
  - Seizure [Unknown]
  - Dehydration [Unknown]
  - Cellulitis [Recovered/Resolved]
  - Cervicitis [Recovered/Resolved]
  - COVID-19 [Recovered/Resolved]
  - Maternal exposure before pregnancy [Unknown]

NARRATIVE: CASE EVENT DATE: 20210910
